FAERS Safety Report 11445765 (Version 5)
Quarter: 2015Q4

REPORT INFORMATION
  Report Type: Spontaneous
  Country: US (occurrence: None)
  Receive Date: 20150902
  Receipt Date: 20151009
  Transmission Date: 20160304
  Serious: Yes (Hospitalization, Other)
  Sender: FDA-Public Use
  Company Number: US-MDT-ADR-2015-01677

PATIENT
  Age: 32 Year
  Sex: Male

DRUGS (1)
  1. LIORESAL [Suspect]
     Active Substance: BACLOFEN
     Indication: MUSCLE SPASTICITY
     Dosage: 419.7 MCG/DAY

REACTIONS (5)
  - Drug withdrawal syndrome [None]
  - Muscle spasticity [None]
  - Tachypnoea [None]
  - Device power source issue [None]
  - Body temperature increased [None]
